FAERS Safety Report 18789405 (Version 1)
Quarter: 2021Q1

REPORT INFORMATION
  Report Type: Report from Study
  Country: DE (occurrence: DE)
  Receive Date: 20210126
  Receipt Date: 20210126
  Transmission Date: 20210419
  Serious: Yes (Other)
  Sender: FDA-Public Use
  Company Number: DE-MYLANLABS-2021M1004675

PATIENT
  Sex: Female

DRUGS (10)
  1. RAMUCIRUMAB [Suspect]
     Active Substance: RAMUCIRUMAB
     Indication: GASTRIC CANCER
     Dosage: UNK
     Route: 065
  2. PACLITAXEL. [Suspect]
     Active Substance: PACLITAXEL
     Dosage: 164 MG, UNKNOWN
     Route: 042
     Dates: start: 20160503
  3. RAMUCIRUMAB [Suspect]
     Active Substance: RAMUCIRUMAB
     Dosage: 692 MG, UNKNOWN
     Route: 065
     Dates: start: 20160517
  4. RAMUCIRUMAB [Suspect]
     Active Substance: RAMUCIRUMAB
     Dosage: 712 MG, UNK
     Route: 065
     Dates: start: 20160503
  5. PACLITAXEL. [Suspect]
     Active Substance: PACLITAXEL
     Indication: GASTRIC CANCER
     Dosage: 165 MG, UNKNOWN
     Route: 042
     Dates: start: 20160406
  6. PACLITAXEL. [Suspect]
     Active Substance: PACLITAXEL
     Dosage: 163 MG, UNKNOWN
     Route: 042
     Dates: start: 20160531
  7. RAMUCIRUMAB [Suspect]
     Active Substance: RAMUCIRUMAB
     Dosage: 704 MG, UNKNOWN
     Route: 065
     Dates: start: 20160531, end: 20160628
  8. PACLITAXEL. [Suspect]
     Active Substance: PACLITAXEL
     Dosage: 163 MG, UNKNOWN
     Route: 042
     Dates: start: 20160419
  9. PACLITAXEL. [Suspect]
     Active Substance: PACLITAXEL
     Dosage: 162 MG, UNKNOWN
     Route: 042
     Dates: start: 20160510
  10. RAMUCIRUMAB [Suspect]
     Active Substance: RAMUCIRUMAB
     Dosage: 720 MG, UNKNOWN
     Route: 065
     Dates: start: 20160406

REACTIONS (4)
  - Alopecia [Unknown]
  - Neuropathy peripheral [Unknown]
  - Haemorrhoids [Unknown]
  - Pain in extremity [Recovered/Resolved]

NARRATIVE: CASE EVENT DATE: 20160407
